FAERS Safety Report 13152312 (Version 4)
Quarter: 2017Q1

REPORT INFORMATION
  Report Type: Report from Study
  Country: CA (occurrence: CA)
  Receive Date: 20170125
  Receipt Date: 20170221
  Transmission Date: 20170428
  Serious: Yes (Hospitalization)
  Sender: FDA-Public Use
  Company Number: CA-HLSUS-2017-CA-000071

PATIENT
  Age: 57 Year
  Sex: Male

DRUGS (2)
  1. CLOZARIL [Suspect]
     Active Substance: CLOZAPINE
     Route: 048
     Dates: start: 20010830, end: 20170111
  2. ZYPREXA [Concomitant]
     Active Substance: OLANZAPINE

REACTIONS (7)
  - Plasma cell myeloma [Unknown]
  - Haematocrit decreased [Unknown]
  - Leukopenia [Unknown]
  - Red blood cell count decreased [Unknown]
  - Adverse event [Unknown]
  - Neutropenia [Unknown]
  - Fall [Unknown]

NARRATIVE: CASE EVENT DATE: 201701
